FAERS Safety Report 9280012 (Version 1)
Quarter: 2013Q2

REPORT INFORMATION
  Report Type: Spontaneous
  Country: US (occurrence: None)
  Receive Date: 20130506
  Receipt Date: 20130506
  Transmission Date: 20140414
  Serious: Yes (Life-Threatening, Hospitalization)
  Sender: FDA-Public Use
  Company Number: None

PATIENT
  Age: 49 Year
  Sex: Female

DRUGS (2)
  1. STIVARGA [Suspect]
     Indication: COLON CANCER
     Dosage: 4X40MG  QD X 3WKS PO
     Route: 048
     Dates: start: 20130409
  2. NORVASC [Concomitant]

REACTIONS (5)
  - Feeling abnormal [None]
  - Hepatic failure [None]
  - Renal failure [None]
  - Fluid retention [None]
  - Cardiac failure congestive [None]
